FAERS Safety Report 7279319-5 (Version None)
Quarter: 2011Q1

REPORT INFORMATION
  Report Type: 
  Country: None (occurrence: None)
  Receive Date: 20110207
  Receipt Date: 20110131
  Transmission Date: 20110831
  Serious: Yes (Hospitalization)
  Sender: FDA-Public Use
  Company Number: PR-MERCK-1102USA00303

PATIENT
  Age: 36 Month
  Sex: Male

DRUGS (1)
  1. SINGULAIR [Suspect]
     Indication: RHINITIS ALLERGIC
     Route: 048
     Dates: start: 20110129, end: 20110129

REACTIONS (1)
  - GENERALISED ERYTHEMA [None]
